FAERS Safety Report 21306693 (Version 2)
Quarter: 2022Q3

REPORT INFORMATION
  Report Type: Spontaneous
  Country: US (occurrence: US)
  Receive Date: 20220908
  Receipt Date: 20220918
  Transmission Date: 20221027
  Serious: No
  Sender: FDA-Public Use
  Company Number: US-LUPIN PHARMACEUTICALS INC.-2022-10961

PATIENT
  Sex: Male

DRUGS (2)
  1. ALBUTEROL SULFATE [Suspect]
     Active Substance: ALBUTEROL SULFATE
     Indication: Chronic obstructive pulmonary disease
     Dosage: UNK, PRN, (INHALE 2 PUFFS Q 4 H PRN )
     Dates: start: 20220826
  2. ALBUTEROL SULFATE [Suspect]
     Active Substance: ALBUTEROL SULFATE
     Indication: Cardiac failure congestive

REACTIONS (5)
  - Mood altered [Unknown]
  - Blood pressure increased [Unknown]
  - Device delivery system issue [Unknown]
  - Off label use [Unknown]
  - Wrong technique in device usage process [Unknown]
